FAERS Safety Report 8156298 (Version 2)
Quarter: 2013Q4

REPORT INFORMATION
  Report Type: Spontaneous
  Country: JP (occurrence: JP)
  Receive Date: 20110926
  Receipt Date: 20131206
  Transmission Date: 20140711
  Serious: Yes (Other)
  Sender: FDA-Public Use
  Company Number: JP-EISAI INC-E2090-01699-SPO-JP

PATIENT
  Age: 59 Year
  Sex: Male

DRUGS (5)
  1. EXCEGRAN [Suspect]
     Indication: EPILEPSY
     Route: 048
     Dates: start: 20110611, end: 20110711
  2. LAC-B [Suspect]
     Indication: DIARRHOEA
     Dosage: 9 GM DAILY
     Route: 048
     Dates: start: 20110708, end: 20110711
  3. AM [Concomitant]
     Route: 048
  4. SELENICA-R [Concomitant]
  5. TSUMURA HOCHUEKKITO [Concomitant]

REACTIONS (1)
  - Stevens-Johnson syndrome [Recovered/Resolved]
